FAERS Safety Report 12862920 (Version 3)
Quarter: 2017Q1

REPORT INFORMATION
  Report Type: Report from Study
  Country: PA (occurrence: PA)
  Receive Date: 20161019
  Receipt Date: 20170210
  Transmission Date: 20170428
  Serious: Yes (Other)
  Sender: FDA-Public Use
  Company Number: PHHY2016PA044048

PATIENT
  Age: 64 Year
  Sex: Female

DRUGS (3)
  1. ZOMETA [Suspect]
     Active Substance: ZOLEDRONIC ACID
     Indication: PRODUCT USED FOR UNKNOWN INDICATION
     Dosage: EVERY 6 MONTHS
     Route: 065
  2. AFINITOR [Suspect]
     Active Substance: EVEROLIMUS
     Indication: PRODUCT USED FOR UNKNOWN INDICATION
     Dosage: 5 MG, UNK
     Route: 065
     Dates: end: 201609
  3. ORAL B (SODIUM PERBORATE) [Suspect]
     Active Substance: SODIUM PERBORATE
     Indication: PRODUCT USED FOR UNKNOWN INDICATION
     Route: 065

REACTIONS (32)
  - Impaired healing [Unknown]
  - Swelling face [Unknown]
  - Oral discomfort [Unknown]
  - Nausea [Unknown]
  - Urticaria [Recovered/Resolved]
  - Arthralgia [Unknown]
  - Asthenia [Unknown]
  - Arthropod bite [Unknown]
  - Pruritus generalised [Recovered/Resolved]
  - Fatigue [Unknown]
  - Pain in extremity [Unknown]
  - Glossitis [Unknown]
  - Diarrhoea [Unknown]
  - Malaise [Unknown]
  - Anal pruritus [Unknown]
  - Tooth abscess [Unknown]
  - Oedema genital [Recovered/Resolved]
  - Muscle swelling [Unknown]
  - Tongue discolouration [Unknown]
  - Weight decreased [Unknown]
  - Somnolence [Unknown]
  - Headache [Unknown]
  - Nasal dryness [Unknown]
  - Glossodynia [Unknown]
  - Dry mouth [Unknown]
  - Oedema peripheral [Not Recovered/Not Resolved]
  - Rash pruritic [Recovering/Resolving]
  - Oral disorder [Unknown]
  - Rhinalgia [Unknown]
  - Saliva altered [Unknown]
  - Vasodilatation [Unknown]
  - Oral pain [Unknown]
